FAERS Safety Report 4407291-1 (Version None)
Quarter: 2004Q3

REPORT INFORMATION
  Report Type: 
  Country: None (occurrence: None)
  Receive Date: 20040721
  Receipt Date: 20040709
  Transmission Date: 20050211
  Serious: Yes (Hospitalization)
  Sender: FDA-Public Use
  Company Number: 163-20785-04070335 (0)

PATIENT
  Age: 46 Year
  Sex: Male

DRUGS (1)
  1. THALOMID [Suspect]
     Indication: HODGKIN'S DISEASE LYMPHOCYTE PREDOMINANCE TYPE STAGE UNSPECIFIED
     Dosage: 50-100MG, QD, ORAL
     Route: 048
     Dates: start: 20030116

REACTIONS (5)
  - ABDOMINAL PAIN [None]
  - ADRENOCORTICAL INSUFFICIENCY ACUTE [None]
  - ADRENOCORTICAL INSUFFICIENCY CHRONIC [None]
  - ANAEMIA [None]
  - PAIN [None]
